FAERS Safety Report 16343912 (Version 6)
Quarter: 2019Q4

REPORT INFORMATION
  Report Type: Report from Study
  Country: US (occurrence: US)
  Receive Date: 20190522
  Receipt Date: 20191122
  Transmission Date: 20200122
  Serious: Yes (Other)
  Sender: FDA-Public Use
  Company Number: PHEH2019US021455

PATIENT
  Sex: Female

DRUGS (1)
  1. GILENYA [Suspect]
     Active Substance: FINGOLIMOD HYDROCHLORIDE
     Indication: MULTIPLE SCLEROSIS
     Dosage: 0.5 MG, QD
     Route: 048

REACTIONS (9)
  - Multiple sclerosis relapse [Unknown]
  - Oropharyngeal pain [Unknown]
  - Sleep disorder [Unknown]
  - Joint swelling [Unknown]
  - Malaise [Unknown]
  - Headache [Unknown]
  - Back pain [Unknown]
  - Dizziness [Unknown]
  - Ear pain [Unknown]
